FAERS Safety Report 11198497 (Version 3)
Quarter: 2015Q3

REPORT INFORMATION
  Report Type: Spontaneous
  Country: US (occurrence: None)
  Receive Date: 20150616
  Receipt Date: 20150721
  Transmission Date: 20151125
  Serious: Yes (Hospitalization, Other)
  Sender: FDA-Public Use
  Company Number: 1224850-2015-00042

PATIENT
  Age: 69 Year
  Sex: Female

DRUGS (13)
  1. COUMADIN [Concomitant]
     Active Substance: WARFARIN SODIUM
  2. PROSCIT [Concomitant]
  3. PHENERGAN [Concomitant]
     Active Substance: PROMETHAZINE HYDROCHLORIDE
  4. CALCITRIOL. [Concomitant]
     Active Substance: CALCITRIOL
  5. AMOXICILLIN. [Concomitant]
     Active Substance: AMOXICILLIN
  6. VITAMIN D [Concomitant]
     Active Substance: CHOLECALCIFEROL
  7. PHOSLO [Suspect]
     Active Substance: CALCIUM ACETATE
     Indication: HYPERPHOSPHATAEMIA
     Route: 048
  8. RENVELA [Concomitant]
     Active Substance: SEVELAMER CARBONATE
  9. COREG [Concomitant]
     Active Substance: CARVEDILOL
  10. CELEXA [Concomitant]
     Active Substance: CITALOPRAM HYDROBROMIDE
  11. MULTIVITAMIN [Concomitant]
     Active Substance: VITAMINS
  12. HYDROCODONE [Concomitant]
     Active Substance: HYDROCODONE
  13. PHOSLO [Concomitant]
     Active Substance: CALCIUM ACETATE

REACTIONS (5)
  - Pleural effusion [None]
  - Fluid overload [None]
  - Asthenia [None]
  - Chest pain [None]
  - Drug dose omission [None]

NARRATIVE: CASE EVENT DATE: 20150529
